FAERS Safety Report 6199623-1 (Version None)
Quarter: 2009Q2

REPORT INFORMATION
  Report Type: 
  Country: None (occurrence: None)
  Receive Date: 20090522
  Receipt Date: 20080730
  Transmission Date: 20091009
  Serious: No
  Sender: FDA-Public Use
  Company Number: A0739578A

PATIENT
  Age: 88 Year
  Sex: Female

DRUGS (5)
  1. BACTROBAN [Suspect]
     Indication: DRUG USE FOR UNKNOWN INDICATION
     Dosage: 1APP TWICE PER DAY
     Route: 061
     Dates: start: 20080723
  2. CEPHALEXIN [Suspect]
  3. BLOOD PRESSURE MEDICATION [Concomitant]
  4. ASPIRIN [Concomitant]
  5. WATER PILL [Concomitant]

REACTIONS (6)
  - APPLICATION SITE DISCHARGE [None]
  - APPLICATION SITE ERYTHEMA [None]
  - APPLICATION SITE IRRITATION [None]
  - APPLICATION SITE PRURITUS [None]
  - PRURITUS [None]
  - SKIN BURNING SENSATION [None]
